FAERS Safety Report 6688677-1 (Version None)
Quarter: 2010Q2

REPORT INFORMATION
  Report Type: 
  Country: None (occurrence: None)
  Receive Date: 20100420
  Receipt Date: 20100419
  Transmission Date: 20101027
  Serious: Yes (Death, Hospitalization)
  Sender: FDA-Public Use
  Company Number: A0814615A

PATIENT
  Age: 46 Year
  Sex: Male
  Weight: 56.8 kg

DRUGS (1)
  1. AVANDIA [Suspect]
     Dosage: 8MG UNKNOWN
     Route: 048
     Dates: end: 20080123

REACTIONS (2)
  - CONDITION AGGRAVATED [None]
  - DEATH [None]
